FAERS Safety Report 6520355-1 (Version None)
Quarter: 2009Q4

REPORT INFORMATION
  Report Type: 
  Country: None (occurrence: None)
  Receive Date: 20091229
  Receipt Date: 20091214
  Transmission Date: 20100525
  Serious: Yes (Other)
  Sender: FDA-Public Use
  Company Number: FR-PFIZER INC-2009311319

PATIENT
  Age: 38 Year
  Sex: Female

DRUGS (3)
  1. SOLU-MEDROL [Suspect]
     Indication: ASCITES
     Dosage: 1 G, BOLUS
     Route: 040
     Dates: start: 20091019, end: 20091021
  2. PROTHIADEN [Concomitant]
     Indication: ANTIDEPRESSANT THERAPY
  3. PROZAC [Concomitant]
     Indication: ANTIDEPRESSANT THERAPY

REACTIONS (3)
  - ALANINE AMINOTRANSFERASE INCREASED [None]
  - ASPARTATE AMINOTRANSFERASE INCREASED [None]
  - GAMMA-GLUTAMYLTRANSFERASE INCREASED [None]
